FAERS Safety Report 6058282-9 (Version None)
Quarter: 2009Q1

REPORT INFORMATION
  Report Type: 
  Country: None (occurrence: None)
  Receive Date: 20090130
  Receipt Date: 20090129
  Transmission Date: 20090719
  Serious: Yes (Other)
  Sender: FDA-Public Use
  Company Number: US-BAYER-200838895NA

PATIENT
  Age: 68 Year
  Sex: Male

DRUGS (1)
  1. MAGNEVIST [Suspect]
     Indication: NUCLEAR MAGNETIC RESONANCE IMAGING
     Dosage: TOTAL DAILY DOSE: 20 ML
     Dates: start: 20070501, end: 20070501

REACTIONS (3)
  - NEPHROGENIC SYSTEMIC FIBROSIS [None]
  - RASH [None]
  - SKIN HYPERTROPHY [None]
